FAERS Safety Report 5260221-5 (Version None)
Quarter: 2007Q1

REPORT INFORMATION
  Report Type: 
  Country: None (occurrence: None)
  Receive Date: 20070309
  Receipt Date: 20060511
  Transmission Date: 20070707
  Serious: No
  Sender: FDA-Public Use
  Company Number: US-GLAXOSMITHKLINE-A0604987A

PATIENT
  Age: 35 Year

DRUGS (6)
  1. NICORETTE (MINT) [Suspect]
  2. NICORETTE (MINT) [Suspect]
  3. NICORETTE [Suspect]
  4. NICORETTE [Suspect]
  5. NICORETTE [Suspect]
  6. NICORETTE (MINT) [Suspect]

REACTIONS (1)
  - INTENTIONAL DRUG MISUSE [None]
